FAERS Safety Report 8444533 (Version 4)
Quarter: 2013Q4

REPORT INFORMATION
  Report Type: Spontaneous
  Country: US (occurrence: US)
  Receive Date: 20120222
  Receipt Date: 20131108
  Transmission Date: 20140711
  Serious: Yes (Disabling, Other)
  Sender: FDA-Public Use
  Company Number: US-009507513-2012SP008466

PATIENT
  Sex: Female
  Weight: 89.81 kg

DRUGS (20)
  1. REMERON [Suspect]
     Indication: INSOMNIA
     Dosage: 30 MG, QD
     Route: 048
  2. HUMULIN R [Suspect]
     Indication: DIABETES MELLITUS
     Dosage: 24 IU, TID
  3. IMDUR [Suspect]
     Indication: CARDIAC DISORDER
     Dosage: 30 MG, TID
  4. LOMOTIL [Suspect]
     Indication: CROHN^S DISEASE
     Dosage: 2.5 MG, QID
     Route: 048
  5. GENERLAC [Suspect]
     Indication: CROHN^S DISEASE
     Dosage: 30 MG, PRN
  6. ATENOLOL [Suspect]
     Indication: HYPERTENSION
     Dosage: 25 MG, QD
     Route: 048
  7. FUROSEMIDE [Suspect]
     Indication: DIURETIC THERAPY
     Dosage: 40 MG, BID
     Route: 048
  8. K-DUR [Suspect]
     Indication: BLOOD POTASSIUM
     Dosage: 8 MEQ, QD
  9. DEPAKOTE [Suspect]
     Indication: CONVULSION
     Dosage: 500 MG, BID
     Route: 048
  10. DILANTIN [Suspect]
     Indication: CONVULSION
     Dosage: 300 MG, BID
     Route: 048
  11. TYLENOL WITH CODEINE #3 [Suspect]
     Indication: MIGRAINE
     Dosage: UNK UNK, QD
  12. ZANTAC [Suspect]
     Indication: GASTROOESOPHAGEAL REFLUX DISEASE
     Dosage: 300 MG, TID
     Route: 048
  13. ATIVAN [Suspect]
     Indication: NERVOUSNESS
     Dosage: 1 MG, TID
     Route: 048
  14. ZOCOR [Suspect]
     Indication: BLOOD CHOLESTEROL INCREASED
     Dosage: 40 MG, QD
     Route: 048
  15. METHOCARBAMOL [Suspect]
     Indication: MUSCLE SPASMS
     Dosage: 750 MG, PRN
     Route: 048
  16. METHOCARBAMOL [Suspect]
     Indication: NEUROPATHY PERIPHERAL
  17. NITROSTAT [Suspect]
     Indication: CHEST PAIN
     Dosage: 0.4 MG, PRN
  18. ASPIRIN [Suspect]
     Indication: CHEST PAIN
     Dosage: 81 MG, PRN
  19. NORVASC [Suspect]
     Indication: PALPITATIONS
     Route: 048
  20. LANTUS [Suspect]
     Indication: DIABETES MELLITUS
     Dosage: 80 UNITS IN THE MORING AND 90 UNITS AT NIGHT

REACTIONS (6)
  - Bedridden [Unknown]
  - Amnesia [Recovering/Resolving]
  - Chronic obstructive pulmonary disease [Unknown]
  - Emphysema [Unknown]
  - Off label use [Unknown]
  - Lung disorder [Unknown]
